FAERS Safety Report 6747476-2 (Version None)
Quarter: 2010Q2

REPORT INFORMATION
  Report Type: 
  Country: None (occurrence: None)
  Receive Date: 20100528
  Receipt Date: 20100525
  Transmission Date: 20101027
  Serious: Yes (Hospitalization)
  Sender: FDA-Public Use
  Company Number: US-MERCK-1005USA00878

PATIENT
  Age: 50 Year
  Sex: Female
  Weight: 45 kg

DRUGS (4)
  1. ZOCOR [Suspect]
     Indication: HYPERCHOLESTEROLAEMIA
     Route: 048
  2. LISINOPRIL [Concomitant]
     Route: 048
  3. ATIVAN [Concomitant]
     Route: 065
  4. PRANDIN [Concomitant]
     Route: 065

REACTIONS (6)
  - ARTHRALGIA [None]
  - DYSPHAGIA [None]
  - SPEECH DISORDER [None]
  - VISUAL IMPAIRMENT [None]
  - WEIGHT DECREASED [None]
  - WHITE BLOOD CELL COUNT ABNORMAL [None]
